FAERS Safety Report 8586870-4 (Version None)
Quarter: 2012Q3

REPORT INFORMATION
  Report Type: 
  Country: None (occurrence: None)
  Receive Date: 20120810
  Receipt Date: 20120611
  Transmission Date: 20120928
  Serious: Yes (Other)
  Sender: FDA-Public Use
  Company Number: CHPA2012US017553

PATIENT
  Age: 73 Year
  Sex: Female

DRUGS (1)
  1. BENEFIBER W/ WHEAT DEXTRIN [Suspect]
     Indication: FAECES HARD
     Dosage: 1 DF, BID
     Route: 048
     Dates: end: 20120501

REACTIONS (3)
  - DRUG INEFFECTIVE FOR UNAPPROVED INDICATION [None]
  - OEDEMA PERIPHERAL [None]
  - FLUID RETENTION [None]
